FAERS Safety Report 13965479 (Version 1)
Quarter: 2017Q3

REPORT INFORMATION
  Report Type: Spontaneous
  Country: US (occurrence: US)
  Receive Date: 20170913
  Receipt Date: 20170913
  Transmission Date: 20171128
  Serious: Yes (Hospitalization)
  Sender: FDA-Public Use
  Company Number: US-LPDUSPRD-20171274

PATIENT
  Age: 80 Year
  Sex: Male

DRUGS (1)
  1. PHENYTOIN SODIUM INJECTION (40042-009-02) [Suspect]
     Active Substance: PHENYTOIN SODIUM
     Dosage: UNKNOWN
     Route: 065

REACTIONS (4)
  - Haemoptysis [Recovered/Resolved]
  - Acquired haemophilia with anti FVIII, XI, or XIII [Recovering/Resolving]
  - Respiratory failure [Unknown]
  - Pemphigoid [Recovering/Resolving]
